FAERS Safety Report 11909721 (Version 3)
Quarter: 2016Q2

REPORT INFORMATION
  Report Type: Spontaneous
  Country: US (occurrence: US)
  Receive Date: 20160112
  Receipt Date: 20160412
  Transmission Date: 20160815
  Serious: Yes (Other)
  Sender: FDA-Public Use
  Company Number: US-BEH-2015057501

PATIENT
  Age: 40 Year
  Sex: Male
  Weight: 77 kg

DRUGS (8)
  1. HYDROCORTISONE. [Concomitant]
     Active Substance: HYDROCORTISONE
  2. HIZENTRA [Suspect]
     Active Substance: HUMAN IMMUNOGLOBULIN G
     Indication: IMMUNODEFICIENCY COMMON VARIABLE
     Route: 058
  3. LIDOCAINE. [Concomitant]
     Active Substance: LIDOCAINE
  4. NASONEX [Concomitant]
     Active Substance: MOMETASONE FUROATE
  5. RIFAMPIN. [Concomitant]
     Active Substance: RIFAMPIN
  6. EPIPEN [Concomitant]
     Active Substance: EPINEPHRINE
  7. DOXYCYCLINE. [Concomitant]
     Active Substance: DOXYCYCLINE
  8. ISONIAZID. [Concomitant]
     Active Substance: ISONIAZID

REACTIONS (3)
  - Umbilical hernia [Recovered/Resolved]
  - Umbilical hernia repair [Recovered/Resolved]
  - Drug dose omission [Unknown]

NARRATIVE: CASE EVENT DATE: 20151204
